FAERS Safety Report 24457407 (Version 1)
Quarter: 2024Q4

REPORT INFORMATION
  Report Type: Spontaneous
  Country: CH (occurrence: CH)
  Receive Date: 20241018
  Receipt Date: 20241018
  Transmission Date: 20250115
  Serious: Yes (Hospitalization, Other)
  Sender: AMGEN
  Company Number: CH-UCBSA-2024040817

PATIENT
  Age: 81 Year
  Sex: Female

DRUGS (5)
  1. EVENITY [Suspect]
     Active Substance: ROMOSOZUMAB-AQQG
     Indication: Osteoporosis
     Dosage: 210 MILLIGRAM, UNK (REPORTED AS ONCE)
     Route: 058
     Dates: start: 20240726, end: 20240825
  2. CALCIUM\VITAMIN D [Concomitant]
     Active Substance: CALCIUM\VITAMIN D
     Indication: Osteoporosis
     Dosage: UNK
  3. Calcimagon D3 Forte [Concomitant]
     Indication: Vitamin D deficiency
     Dosage: UNK UNK, ONCE DAILY (QD)
  4. CORTICOSTEROID NOS [Concomitant]
     Active Substance: CORTICOSTEROID NOS
     Indication: Dermatitis atopic
     Dosage: UNK
  5. VITAMIN D3 [Concomitant]
     Active Substance: CHOLECALCIFEROL
     Indication: Vitamin D deficiency
     Dosage: 20000 IU INTERNATIONAL UNIT(S), ONE TIME DOSE

REACTIONS (13)
  - Craniocerebral injury [Unknown]
  - Dermatitis atopic [Recovered/Resolved]
  - Eosinophilia [Recovered/Resolved]
  - Eczema impetiginous [Recovered/Resolved]
  - Normal pressure hydrocephalus [Unknown]
  - Fall [Unknown]
  - Oedema peripheral [Unknown]
  - Hyperparathyroidism [Unknown]
  - Back pain [Unknown]
  - Skin laceration [Unknown]
  - Head injury [Unknown]
  - Contusion [Unknown]
  - Rash [Not Recovered/Not Resolved]

NARRATIVE: CASE EVENT DATE: 20240701
